FAERS Safety Report 19089008 (Version 1)
Quarter: 2021Q2

REPORT INFORMATION
  Report Type: Spontaneous
  Country: JP (occurrence: JP)
  Receive Date: 20210403
  Receipt Date: 20210403
  Transmission Date: 20210717
  Serious: Yes (Hospitalization)
  Sender: FDA-Public Use
  Company Number: JP-ROCHE-2797249

PATIENT
  Sex: Female

DRUGS (11)
  1. THEO?DUR [Concomitant]
     Active Substance: THEOPHYLLINE ANHYDROUS
     Indication: ASTHMA
     Route: 048
  2. SPIRIVA [Concomitant]
     Active Substance: TIOTROPIUM BROMIDE MONOHYDRATE
     Indication: ASTHMA
     Route: 055
  3. ROSUVASTATIN. [Concomitant]
     Active Substance: ROSUVASTATIN
     Indication: ASTHMA
     Route: 048
  4. PRANLUKAST [Concomitant]
     Active Substance: PRANLUKAST
     Indication: ASTHMA
     Route: 048
  5. FOSAMAC [Concomitant]
     Active Substance: ALENDRONATE SODIUM
     Indication: ASTHMA
     Route: 048
  6. MEPTIN [Concomitant]
     Active Substance: PROCATEROL HYDROCHLORIDE
     Indication: ASTHMA
     Route: 055
  7. CLARITH [Concomitant]
     Active Substance: CLARITHROMYCIN
     Indication: ASTHMA
     Route: 048
  8. HERBESSER [Concomitant]
     Active Substance: DILTIAZEM HYDROCHLORIDE
     Indication: ASTHMA
     Route: 048
  9. XOLAIR [Suspect]
     Active Substance: OMALIZUMAB
     Indication: ASTHMA
     Route: 058
     Dates: start: 20191028
  10. FLUTIFORM [Concomitant]
     Active Substance: FLUTICASONE PROPIONATE\FORMOTEROL FUMARATE
     Indication: ASTHMA
     Route: 055
  11. FAMOTIDINE. [Concomitant]
     Active Substance: FAMOTIDINE
     Indication: ASTHMA
     Route: 048

REACTIONS (3)
  - Asthma [Recovering/Resolving]
  - Disease progression [Recovering/Resolving]
  - Dyspnoea [Recovering/Resolving]
